FAERS Safety Report 8866172 (Version 1)
Quarter: 2012Q4

REPORT INFORMATION
  Report Type: 
  Country: GB (occurrence: GB)
  Receive Date: 20121025
  Receipt Date: 20121025
  Transmission Date: 20130627
  Serious: Yes (Other)
  Sender: FDA-Public Use
  Company Number: GB-ASTRAZENECA-2012SE79281

PATIENT
  Sex: Female

DRUGS (3)
  1. ZOLADEX [Suspect]
     Indication: ADNEXA UTERI PAIN
     Route: 058
     Dates: start: 20120926
  2. NAPROXEN [Concomitant]
     Indication: PAIN
     Route: 048
     Dates: start: 20120622, end: 20120926
  3. MELOXICAM [Concomitant]
     Indication: PAIN
     Route: 048
     Dates: start: 20120926

REACTIONS (4)
  - Dizziness [Recovering/Resolving]
  - Rash erythematous [Recovering/Resolving]
  - Pharyngeal oedema [Recovering/Resolving]
  - Rash macular [Recovering/Resolving]
